FAERS Safety Report 23787914 (Version 1)
Quarter: 2024Q2

REPORT INFORMATION
  Report Type: Spontaneous
  Country: FR (occurrence: FR)
  Receive Date: 20240426
  Receipt Date: 20240426
  Transmission Date: 20240715
  Serious: Yes (Hospitalization)
  Sender: FDA-Public Use
  Company Number: None

PATIENT
  Age: 45 Year
  Sex: Female
  Weight: 70 kg

DRUGS (7)
  1. DROSPIRENONE [Suspect]
     Active Substance: DROSPIRENONE
     Indication: Contraception
     Route: 048
     Dates: start: 20220606, end: 20240315
  2. DROSPIRENONE [Concomitant]
     Active Substance: DROSPIRENONE
     Indication: Contraception
     Dosage: JASMINE 0,03 MG/3 MG, COMPRIM? PELLICUL? [DROSPIRENONE, ?THINYLESTRADIOL]
     Route: 048
  3. NOMEGESTROL ACETATE [Concomitant]
     Active Substance: NOMEGESTROL ACETATE
     Indication: Contraception
     Dosage: LUTENYL 3,75 MG, COMPRIM? [ACETATE DE NOMEGESTROL]
     Route: 048
  4. DESOGESTREL [Concomitant]
     Active Substance: DESOGESTREL
     Indication: Contraception
     Dosage: OPTIMIZETTE 75 MICROGRAMMES, COMPRIM? PELLICUL? [DESOGESTREL]
     Route: 048
  5. DESOGESTREL\ETHINYL ESTRADIOL [Concomitant]
     Active Substance: DESOGESTREL\ETHINYL ESTRADIOL
     Indication: Contraception
     Dosage: VARNOLINE, COMPRIM? [DESOGESTREL, ?THINYLESTRADIOL]
     Route: 048
  6. ETHINYL ESTRADIOL\GESTODENE [Concomitant]
     Active Substance: ETHINYL ESTRADIOL\GESTODENE
     Indication: Contraception
     Dosage: MINULET, COMPRIM? ENROB? [GESTODENE, ?THINYLESTRADIOL]
     Route: 048
  7. DIANE (CYPROTERONE ACETATE\ETHINYL ESTRADIOL) [Concomitant]
     Active Substance: CYPROTERONE ACETATE\ETHINYL ESTRADIOL
     Indication: Contraception
     Dosage: DIANE 35 MICROGRAMMES, COMPRIM? ENROB? [CYPROTERONE (ACETATE DE), ?THINYLESTRADIOL]
     Route: 048

REACTIONS (1)
  - Invasive lobular breast carcinoma [Not Recovered/Not Resolved]

NARRATIVE: CASE EVENT DATE: 20240226
